FAERS Safety Report 16144868 (Version 1)
Quarter: 2019Q2

REPORT INFORMATION
  Report Type: Other
  Country: GB (occurrence: GB)
  Receive Date: 20190402
  Receipt Date: 20190402
  Transmission Date: 20190711
  Serious: No
  Sender: FDA-Public Use
  Company Number: GB-LUPIN PHARMACEUTICALS INC.-2018-07322

PATIENT
  Age: 31 Year
  Sex: Female
  Weight: 92 kg

DRUGS (8)
  1. FLUOXETINE [Concomitant]
     Active Substance: FLUOXETINE HYDROCHLORIDE
     Indication: ILL-DEFINED DISORDER
     Dosage: UNK, QD
     Route: 065
     Dates: start: 20180914, end: 20180924
  2. SERTRALINE [Suspect]
     Active Substance: SERTRALINE HYDROCHLORIDE
     Indication: ILL-DEFINED DISORDER
     Dosage: UNK
     Route: 065
     Dates: start: 20181001
  3. SERTRALINE [Suspect]
     Active Substance: SERTRALINE HYDROCHLORIDE
     Dosage: UNK, A HALF (25MG) DAILY, INCREASING AS DIRECTED BY ...
     Route: 065
     Dates: start: 20180703
  4. DULOXETINE. [Concomitant]
     Active Substance: DULOXETINE
     Indication: ILL-DEFINED DISORDER
     Dosage: UNK, QD
     Route: 065
     Dates: start: 20171204, end: 20180725
  5. PROPRANOLOL [Concomitant]
     Active Substance: PROPRANOLOL HYDROCHLORIDE
     Indication: ILL-DEFINED DISORDER
     Dosage: UNK, QD
     Route: 065
     Dates: start: 20180419
  6. CODEINE PHOSPHATE [Concomitant]
     Active Substance: CODEINE PHOSPHATE
     Indication: ILL-DEFINED DISORDER
     Dosage: UNK, TAKE ONE OR TWO 4 TIMES/DAY WHEN REQUIRED, CAN ...
     Route: 065
     Dates: start: 20180726, end: 20180823
  7. SUMATRIPTAN. [Concomitant]
     Active Substance: SUMATRIPTAN
     Indication: ILL-DEFINED DISORDER
     Dosage: UNK, TAKE HALF TABLET FOR MIGRAINE ATTACK, IF NO EFF...
     Route: 065
     Dates: start: 20180613
  8. SERTRALINE                         /01011402/ [Concomitant]
     Active Substance: SERTRALINE HYDROCHLORIDE
     Indication: ILL-DEFINED DISORDER
     Dosage: UNK UNK, QD, A HALF (25MG) DAILY, INCREASING AS DIRECTED BY ..
     Route: 065
     Dates: start: 20180703

REACTIONS (1)
  - Nausea [Recovered/Resolved]

NARRATIVE: CASE EVENT DATE: 20181001
